FAERS Safety Report 22652695 (Version 1)
Quarter: 2023Q2

REPORT INFORMATION
  Report Type: Spontaneous
  Country: BR (occurrence: None)
  Receive Date: 20230629
  Receipt Date: 20230629
  Transmission Date: 20230721
  Serious: Yes (Other)
  Sender: FDA-Public Use
  Company Number: BR-ROCHE-3374167

PATIENT
  Age: 73 Year
  Sex: Male

DRUGS (3)
  1. TECENTRIQ [Suspect]
     Active Substance: ATEZOLIZUMAB
     Indication: Small cell lung cancer
     Dosage: ON CYCLE 2 FOR 4 CYCLES
     Route: 042
  2. CISPLATIN [Concomitant]
     Active Substance: CISPLATIN
     Indication: Small cell lung cancer
     Dosage: DAY 1
  3. ETOPOSIDE [Concomitant]
     Active Substance: ETOPOSIDE
     Indication: Small cell lung cancer
     Dosage: DAY 1 TO DAY 3

REACTIONS (6)
  - Disease recurrence [Unknown]
  - Lymphadenopathy [Unknown]
  - COVID-19 [Unknown]
  - Pneumonitis [Unknown]
  - Microangiopathy [Unknown]
  - Gliosis [Unknown]

NARRATIVE: CASE EVENT DATE: 20190613
